FAERS Safety Report 8310529-1 (Version None)
Quarter: 2012Q2

REPORT INFORMATION
  Report Type: 
  Country: None (occurrence: None)
  Receive Date: 20120425
  Receipt Date: 20120412
  Transmission Date: 20120825
  Serious: Yes (Death)
  Sender: FDA-Public Use
  Company Number: CH-CELGENEUS-151-21880-12041354

PATIENT
  Sex: Male
  Weight: 75 kg

DRUGS (3)
  1. DAUNORUBICIN HCL [Suspect]
     Route: 041
     Dates: start: 20120326, end: 20120328
  2. CYTARABINE [Suspect]
     Route: 041
     Dates: start: 20120326, end: 20120401
  3. REVLIMID [Suspect]
     Route: 048
     Dates: start: 20120326, end: 20120402

REACTIONS (1)
  - GASTROINTESTINAL HAEMORRHAGE [None]
